FAERS Safety Report 24531109 (Version 1)
Quarter: 2024Q4

REPORT INFORMATION
  Report Type: Spontaneous
  Country: BR (occurrence: BR)
  Receive Date: 20241022
  Receipt Date: 20241022
  Transmission Date: 20250115
  Serious: Yes (Other)
  Sender: CURRAX PHARMACEUTICALS
  Company Number: BR-NALPROPION PHARMACEUTICALS INC.-BR-2024CUR004602

PATIENT
  Age: 59 Year
  Sex: Female

DRUGS (1)
  1. CONTRAVE [Suspect]
     Active Substance: BUPROPION HYDROCHLORIDE\NALTREXONE HYDROCHLORIDE
     Indication: Binge eating
     Dosage: 196.0 MILLIGRAM(S) (98 MILLIGRAM(S), 2 IN 1 DAY) 2 TABLETS PER DAY, 1 TABLET AT 10 AM AND 1 TABLET A
     Route: 048
     Dates: start: 20241009, end: 20241010

REACTIONS (11)
  - Cold sweat [Unknown]
  - Hepatic function abnormal [Unknown]
  - Hypotension [Unknown]
  - Syncope [Unknown]
  - Abdominal pain upper [Not Recovered/Not Resolved]
  - Vertigo [Unknown]
  - Nausea [Unknown]
  - Abdominal discomfort [Not Recovered/Not Resolved]
  - Malaise [Unknown]
  - Headache [Not Recovered/Not Resolved]
  - Product prescribing issue [Unknown]

NARRATIVE: CASE EVENT DATE: 20241001
